FAERS Safety Report 6186730-2 (Version None)
Quarter: 2009Q2

REPORT INFORMATION
  Report Type: 
  Country: None (occurrence: None)
  Receive Date: 20090508
  Receipt Date: 20090508
  Transmission Date: 20091009
  Serious: Yes (Other)
  Sender: FDA-Public Use
  Company Number: None

PATIENT
  Age: 40 Year
  Sex: Female
  Weight: 50.3493 kg

DRUGS (1)
  1. KENALOG [Suspect]
     Indication: ASTHMA
     Dosage: 1 CC ACUTE FOR ASTH,A CUTANEOUS
     Route: 003
     Dates: start: 20090504, end: 20090504

REACTIONS (3)
  - AGGRESSION [None]
  - ANXIETY [None]
  - EMOTIONAL DISORDER [None]
